FAERS Safety Report 9280833 (Version 1)
Quarter: 2013Q2

REPORT INFORMATION
  Report Type: Spontaneous
  Country: CN (occurrence: None)
  Receive Date: 20130503
  Receipt Date: 20130503
  Transmission Date: 20140414
  Serious: Yes (Hospitalization)
  Sender: FDA-Public Use
  Company Number: NSR_01125_2013

PATIENT
  Sex: 0

DRUGS (1)
  1. CLONIDINE (CLONIDINE) INJECTION [Suspect]
     Indication: PRODUCT USED FOR UNKNOWN INDICATION
     Dosage: ([NOT THE PRESCRIBED DOSE])

REACTIONS (17)
  - Food poisoning [None]
  - Poisoning deliberate [None]
  - Lethargy [None]
  - Accidental exposure to product [None]
  - Dysarthria [None]
  - Tinnitus [None]
  - Dizziness [None]
  - Asthenia [None]
  - Dry mouth [None]
  - Nausea [None]
  - Vision blurred [None]
  - Vomiting [None]
  - Hypoaesthesia oral [None]
  - Hypotension [None]
  - Bradycardia [None]
  - Orthostatic hypotension [None]
  - Toxicity to various agents [None]
